FAERS Safety Report 11516525 (Version 1)
Quarter: 2015Q3

REPORT INFORMATION
  Report Type: Spontaneous
  Country: US (occurrence: None)
  Receive Date: 20150915
  Receipt Date: 20150915
  Transmission Date: 20151125
  Serious: No
  Sender: FDA-Public Use
  Company Number: 1210513-2015-00155

PATIENT
  Age: 45 Year
  Sex: Female

DRUGS (1)
  1. SHEFFIELD TRIPLE ANTIBIOTIC PLUS PAIN RELIEF [Suspect]
     Active Substance: BACITRACIN ZINC\NEOMYCIN SULFATE\POLYMYXIN B SULFATE\PRAMOXINE HYDROCHLORIDE
     Indication: ANTIBIOTIC THERAPY
     Dosage: 1X/DAY, TOPICAL 060
     Route: 061

REACTIONS (4)
  - Application site scar [None]
  - Product quality issue [None]
  - Expired product administered [None]
  - Blister [None]

NARRATIVE: CASE EVENT DATE: 2014
